FAERS Safety Report 20307291 (Version 1)
Quarter: 2022Q1

REPORT INFORMATION
  Report Type: Spontaneous
  Country: US (occurrence: US)
  Receive Date: 20220107
  Receipt Date: 20220107
  Transmission Date: 20220424
  Serious: Yes (Hospitalization)
  Sender: FDA-Public Use
  Company Number: US-CIPLA (EU) LIMITED-2021US08417

PATIENT

DRUGS (6)
  1. AMANTADINE [Suspect]
     Active Substance: AMANTADINE
     Indication: Locked-in syndrome
     Dosage: UNK
     Route: 065
  2. DONEPEZIL [Suspect]
     Active Substance: DONEPEZIL
     Indication: Locked-in syndrome
     Dosage: UNK
     Route: 065
  3. CARBIDOPA\LEVODOPA [Suspect]
     Active Substance: CARBIDOPA\LEVODOPA
     Indication: Locked-in syndrome
     Dosage: UNK
     Route: 065
  4. MODAFINIL [Suspect]
     Active Substance: MODAFINIL
     Indication: Locked-in syndrome
     Dosage: UNK
     Route: 065
  5. METHYLPHENIDATE [Suspect]
     Active Substance: METHYLPHENIDATE
     Indication: Locked-in syndrome
     Dosage: UNK
     Route: 065
  6. BROMOCRIPTINE [Suspect]
     Active Substance: BROMOCRIPTINE
     Indication: Locked-in syndrome
     Dosage: UNK
     Route: 065

REACTIONS (1)
  - Treatment failure [Unknown]
